FAERS Safety Report 23294787 (Version 1)
Quarter: 2023Q4

REPORT INFORMATION
  Report Type: Spontaneous
  Country: US (occurrence: US)
  Receive Date: 20231213
  Receipt Date: 20231213
  Transmission Date: 20240109
  Serious: Yes (Hospitalization, Other)
  Sender: FDA-Public Use
  Company Number: US-GILEAD-2023-0654782

PATIENT
  Age: 57 Year
  Sex: Male

DRUGS (8)
  1. YESCARTA [Suspect]
     Active Substance: AXICABTAGENE CILOLEUCEL
     Indication: Diffuse large B-cell lymphoma
     Route: 065
  2. ACYCLOVIR [Concomitant]
     Active Substance: ACYCLOVIR
  3. LOSARTAN [Concomitant]
     Active Substance: LOSARTAN
  4. FLUDARABINE [Concomitant]
     Active Substance: FLUDARABINE PHOSPHATE
  5. FUROSEMIDE [Concomitant]
     Active Substance: FUROSEMIDE
  6. CYTOXAN [Concomitant]
     Active Substance: CYCLOPHOSPHAMIDE
  7. ALLOPURINOL [Concomitant]
     Active Substance: ALLOPURINOL
  8. METOPROLOL [Concomitant]
     Active Substance: METOPROLOL

REACTIONS (18)
  - Cardiorenal syndrome [Unknown]
  - Haemodynamic instability [Unknown]
  - Excessive eye blinking [Unknown]
  - Blood creatinine abnormal [Unknown]
  - Hiccups [Unknown]
  - Sepsis [Unknown]
  - Multiple organ dysfunction syndrome [Unknown]
  - Orthostatic hypotension [Unknown]
  - Hypervolaemia [Unknown]
  - Weight decreased [Unknown]
  - Tachycardia [Unknown]
  - Hypotension [Unknown]
  - Neurotoxicity [Unknown]
  - Confusional state [Unknown]
  - Tremor [Unknown]
  - Disturbance in attention [Unknown]
  - Acute kidney injury [Unknown]
  - Pyrexia [Unknown]

NARRATIVE: CASE EVENT DATE: 20190522
